FAERS Safety Report 4472049-4 (Version None)
Quarter: 2004Q4

REPORT INFORMATION
  Report Type: 
  Country: None (occurrence: None)
  Receive Date: 20041012
  Receipt Date: 20040927
  Transmission Date: 20050328
  Serious: Yes (Other)
  Sender: FDA-Public Use
  Company Number: 2004070573

PATIENT
  Age: 77 Year
  Sex: Male
  Weight: 68.0396 kg

DRUGS (2)
  1. ROLAIDS [Suspect]
     Indication: ULCER
     Dosage: QUITE A FEW MANY TIMES PER DAY, ORAL
     Route: 048
  2. ONE-A-DAY (ASCORBIC ACID, CYANOCOBALAMIN, ERGOCALCIFEROL, NICOTINAMIDE [Concomitant]

REACTIONS (2)
  - CARDIAC DISORDER [None]
  - SYNCOPE [None]
